FAERS Safety Report 8788660 (Version 1)
Quarter: 2012Q4

REPORT INFORMATION
  Report Type: 
  Country: US (occurrence: US)
  Receive Date: 20120917
  Receipt Date: 20120917
  Transmission Date: 20130627
  Serious: No
  Sender: FDA-Public Use
  Company Number: US-PFIZER INC-2012227890

PATIENT
  Sex: Male

DRUGS (2)
  1. LYRICA [Suspect]
     Indication: PAIN IN EXTREMITY
     Dosage: 150 mg, 2x/day
     Route: 048
     Dates: end: 20120904
  2. LYRICA [Suspect]
     Dosage: 300 mg, 2x/day
     Route: 048
     Dates: start: 20120905

REACTIONS (4)
  - Somnolence [Unknown]
  - Fatigue [Unknown]
  - Drug ineffective [Unknown]
  - Pain in extremity [Unknown]
